FAERS Safety Report 5340535-0 (Version None)
Quarter: 2007Q2

REPORT INFORMATION
  Report Type: 
  Country: None (occurrence: None)
  Receive Date: 20070405
  Receipt Date: 20061201
  Transmission Date: 20071010
  Serious: No
  Sender: FDA-Public Use
  Company Number: US200612000086

PATIENT
  Sex: Male

DRUGS (3)
  1. CYMBALTA [Suspect]
     Indication: ANGER
     Dosage: SEE IMAGE
     Route: 048
     Dates: start: 20060101, end: 20060101
  2. CYMBALTA [Suspect]
     Indication: ANGER
     Dosage: SEE IMAGE
     Route: 048
     Dates: start: 20061001, end: 20060101
  3. EPINEPHRINE [Concomitant]

REACTIONS (5)
  - BURNING SENSATION [None]
  - DIZZINESS [None]
  - HYPOAESTHESIA [None]
  - NAUSEA [None]
  - PARAESTHESIA [None]
